FAERS Safety Report 4412042-0 (Version None)
Quarter: 2004Q2

REPORT INFORMATION
  Report Type: 
  Country: None (occurrence: None)
  Receive Date: 20040630
  Receipt Date: 20040322
  Transmission Date: 20050107
  Serious: No
  Sender: FDA-Public Use
  Company Number: 04P-163-0254208-00

PATIENT
  Age: 55 Year
  Sex: Female
  Weight: 81.6475 kg

DRUGS (10)
  1. HUMIRA [Suspect]
     Indication: RHEUMATOID ARTHRITIS
     Dosage: 40 MG, 1 IN 2 WK, SUBCUTANEOUS
     Route: 058
     Dates: start: 20031101
  2. CETIRIZINE HCL [Concomitant]
  3. LETROZOLE [Concomitant]
  4. GABAPENTIN [Concomitant]
  5. BENICAR [Concomitant]
  6. VICODIN [Concomitant]
  7. METHOTREXATE [Concomitant]
  8. MELOXICAM [Concomitant]
  9. FOLIC ACID [Concomitant]
  10. ATORVASTATIN CALCIUM [Concomitant]

REACTIONS (1)
  - LACRIMATION INCREASED [None]
